FAERS Safety Report 13577285 (Version 3)
Quarter: 2017Q3

REPORT INFORMATION
  Report Type: Spontaneous
  Country: US (occurrence: US)
  Receive Date: 20170524
  Receipt Date: 20170706
  Transmission Date: 20171127
  Serious: Yes (Other)
  Sender: FDA-Public Use
  Company Number: US-GLAXOSMITHKLINE-US2017077354

PATIENT
  Age: 69 Year
  Sex: Female

DRUGS (1)
  1. EX-LAX REGULAR STRENGTH CHOCOLATED STIMULANT LAXATIVE [Suspect]
     Active Substance: SENNOSIDES
     Indication: CONSTIPATION
     Dosage: UNK
     Dates: start: 201705

REACTIONS (2)
  - Rectal haemorrhage [Not Recovered/Not Resolved]
  - Limb operation [Unknown]
